FAERS Safety Report 16737955 (Version 1)
Quarter: 2019Q3

REPORT INFORMATION
  Report Type: Spontaneous
  Country: GB (occurrence: GB)
  Receive Date: 20190824
  Receipt Date: 20190824
  Transmission Date: 20191005
  Serious: Yes (Hospitalization)
  Sender: FDA-Public Use
  Company Number: GB-TEVA-2019-GB-1096200

PATIENT
  Age: 46 Year
  Sex: Male

DRUGS (1)
  1. MORPHINE [Suspect]
     Active Substance: MORPHINE
     Indication: PAIN
     Dosage: OVER 75MG OF MORPHINE OVER THE 24 HOUR PERIOD PLUS PATIENT-CONTROLLED ANALGESIA (PCA)
     Route: 065

REACTIONS (4)
  - Contraindicated product prescribed [Unknown]
  - Respiratory failure [Unknown]
  - Toxicity to various agents [Unknown]
  - Somnolence [Unknown]
